FAERS Safety Report 16725025 (Version 3)
Quarter: 2019Q3

REPORT INFORMATION
  Report Type: Report from Study
  Country: CA (occurrence: CA)
  Receive Date: 20190821
  Receipt Date: 20190826
  Transmission Date: 20191005
  Serious: Yes (Other)
  Sender: FDA-Public Use
  Company Number: CA-PFIZER INC-2019352758

PATIENT
  Age: 38 Year
  Sex: Female

DRUGS (5)
  1. MAR AMITRIPTYLINE [Concomitant]
     Dosage: UNK
     Dates: start: 201612
  2. TECTA [Suspect]
     Active Substance: PANTOPRAZOLE MAGNESIUM
     Indication: OESOPHAGITIS
     Dosage: UNK
     Route: 065
     Dates: start: 2008
  3. ENTYVIO [Suspect]
     Active Substance: VEDOLIZUMAB
     Indication: CROHN^S DISEASE
     Dosage: 300 MILLIGRAM
     Route: 042
     Dates: start: 20160919
  4. INFLAMATIX [Concomitant]
     Dosage: UNK
  5. CITALOPRAM [Concomitant]
     Active Substance: CITALOPRAM HYDROBROMIDE
     Dosage: UNK

REACTIONS (1)
  - Lung infection [Unknown]
